FAERS Safety Report 20566029 (Version 1)
Quarter: 2022Q1

REPORT INFORMATION
  Report Type: Spontaneous
  Country: US (occurrence: US)
  Receive Date: 20220308
  Receipt Date: 20220308
  Transmission Date: 20220423
  Serious: No
  Sender: FDA-Public Use
  Company Number: US-BIOVITRUM-2022US03250

PATIENT
  Sex: Male
  Weight: 5 kg

DRUGS (4)
  1. SYNAGIS [Suspect]
     Active Substance: PALIVIZUMAB
     Indication: Premature baby
     Route: 030
  2. POLY-VI-SOL DROPS [Concomitant]
     Dosage: 250 MG/50 ML DROPS
  3. IRONUP DROPS [Concomitant]
     Dosage: 15 MG/0.5 ML DROPS
  4. SYNAGIS [Suspect]
     Active Substance: PALIVIZUMAB
     Indication: Bronchopulmonary dysplasia

REACTIONS (1)
  - Abdominal pain upper [Unknown]
